FAERS Safety Report 8111246-3 (Version None)
Quarter: 2012Q1

REPORT INFORMATION
  Report Type: 
  Country: None (occurrence: None)
  Receive Date: 20120203
  Receipt Date: 20110713
  Transmission Date: 20120608
  Serious: No
  Sender: FDA-Public Use
  Company Number: US-GLAXOSMITHKLINE-A0936660A

PATIENT
  Age: 46 Year
  Sex: Female

DRUGS (3)
  1. LAMOTRIGINE [Suspect]
     Indication: BIPOLAR DISORDER
     Dosage: 25MG PER DAY
     Route: 048
     Dates: start: 20110608
  2. TOPROL-XL [Concomitant]
     Dates: start: 20010101
  3. ZOLOFT [Concomitant]
     Dates: start: 20101001

REACTIONS (2)
  - RASH PRURITIC [None]
  - CONDITION AGGRAVATED [None]
